FAERS Safety Report 4533043-8 (Version None)
Quarter: 2004Q4

REPORT INFORMATION
  Report Type: 
  Country: None (occurrence: None)
  Receive Date: 20041210
  Receipt Date: 20040823
  Transmission Date: 20050328
  Serious: No
  Sender: FDA-Public Use
  Company Number: 2004-00390

PATIENT
  Age: 56 Year
  Sex: Male
  Weight: 92.5 kg

DRUGS (3)
  1. VELCADE [Suspect]
     Indication: B-CELL LYMPHOMA
     Dosage: 2.00 MG, INTRAVENOUS
     Route: 042
     Dates: start: 20040514
  2. KYTRIL [Concomitant]
  3. DEXAMETHASONE [Concomitant]

REACTIONS (1)
  - PLATELET COUNT DECREASED [None]
